FAERS Safety Report 4524423-5 (Version None)
Quarter: 2004Q4

REPORT INFORMATION
  Report Type: 
  Country: None (occurrence: None)
  Receive Date: 20041116
  Receipt Date: 20040713
  Transmission Date: 20050328
  Serious: Yes (Hospitalization)
  Sender: FDA-Public Use
  Company Number: US-JNJFOC-20040702946

PATIENT
  Age: 75 Year
  Sex: Female

DRUGS (5)
  1. MOTRIN [Suspect]
     Indication: ARTHRITIS
     Dosage: 800 MG QD-BID
  2. AGGRENOX [Suspect]
     Indication: PROPHYLAXIS
     Dosage: 2 IN 1 DAY, ORAL
     Route: 048
     Dates: start: 20030101, end: 20040213
  3. LOTENSIN [Concomitant]
  4. TENORMIN [Concomitant]
  5. VITAMINS (VITAMINS) [Concomitant]

REACTIONS (1)
  - GASTROINTESTINAL HAEMORRHAGE [None]
